FAERS Safety Report 18302325 (Version 1)
Quarter: 2020Q3

REPORT INFORMATION
  Report Type: Spontaneous
  Country: US (occurrence: US)
  Receive Date: 20200923
  Receipt Date: 20200923
  Transmission Date: 20201103
  Serious: No
  Sender: FDA-Public Use
  Company Number: US-LANNETT COMPANY, INC.-US-2020LAN000113

PATIENT
  Age: 1 Year
  Sex: Male

DRUGS (3)
  1. PENTACEL                           /09405401/ [Concomitant]
     Indication: IMMUNISATION
     Dosage: UNK
     Route: 065
     Dates: start: 20200427, end: 20200427
  2. PREVNAR [Concomitant]
     Active Substance: PNEUMOCOCCAL 7-VALENT CONJUGATE VACCINE (DIPHTHERIA CRM197 PROTEIN)
     Indication: IMMUNISATION
     Dosage: UNK
     Route: 065
     Dates: start: 20200427, end: 20200427
  3. HYDROXYZINE HYDROCHLORIDE. [Suspect]
     Active Substance: HYDROXYZINE HYDROCHLORIDE
     Indication: PRURITUS
     Dosage: 3 ML, QD, GIVEN AT NIGHT
     Route: 048
     Dates: start: 20200427, end: 20200430

REACTIONS (2)
  - Eczema [Not Recovered/Not Resolved]
  - Pruritus [Not Recovered/Not Resolved]

NARRATIVE: CASE EVENT DATE: 20200429
